FAERS Safety Report 24797221 (Version 4)
Quarter: 2025Q1

REPORT INFORMATION
  Report Type: Spontaneous
  Country: US (occurrence: US)
  Receive Date: 20250101
  Receipt Date: 20250110
  Transmission Date: 20250408
  Serious: Yes (Hospitalization, Other)
  Sender: AMGEN
  Company Number: US-AMGEN-USASP2024253840

PATIENT

DRUGS (1)
  1. INFLIXIMAB [Suspect]
     Active Substance: INFLIXIMAB
     Indication: Colitis ulcerative
     Route: 065

REACTIONS (6)
  - Inflammatory bowel disease [Unknown]
  - Unevaluable event [Unknown]
  - Infection [Unknown]
  - Adverse event [Unknown]
  - Treatment noncompliance [Unknown]
  - Drug ineffective [Unknown]
